FAERS Safety Report 5575689-4 (Version None)
Quarter: 2007Q4

REPORT INFORMATION
  Report Type: 
  Country: None (occurrence: None)
  Receive Date: 20071221
  Receipt Date: 20071214
  Transmission Date: 20080405
  Serious: Yes (Other)
  Sender: FDA-Public Use
  Company Number: S07-ESP-06361-01

PATIENT
  Sex: Female

DRUGS (1)
  1. PROPESS (DINOPROSTONE) [Suspect]
     Indication: LABOUR INDUCTION
     Dosage: 10 MG ONCE VG
     Route: 067
     Dates: start: 20070725, end: 20070725

REACTIONS (6)
  - DRUG EXPOSURE DURING PREGNANCY [None]
  - FOETAL DISORDER [None]
  - FOETAL DISTRESS SYNDROME [None]
  - HAEMATOMA [None]
  - INTRA-UTERINE DEATH [None]
  - PLACENTAL DISORDER [None]
